FAERS Safety Report 9782347 (Version 2)
Quarter: 2013Q4

REPORT INFORMATION
  Report Type: Spontaneous
  Country: US (occurrence: US)
  Receive Date: 20131226
  Receipt Date: 20131227
  Transmission Date: 20140711
  Serious: Yes (Hospitalization)
  Sender: FDA-Public Use
  Company Number: US-DRREDDYS-USA/USA/13/0036636

PATIENT
  Age: 83 Year
  Sex: Male

DRUGS (2)
  1. OMEPRAZOLE MAGNESIUM DELAYED RELEASE OTC [Suspect]
     Indication: BARRETT^S OESOPHAGUS
     Route: 048
     Dates: start: 2013, end: 2013
  2. ALLOPURINOL [Concomitant]
     Indication: GOUT
     Route: 065

REACTIONS (1)
  - Rash pruritic [Not Recovered/Not Resolved]
